FAERS Safety Report 14680235 (Version 5)
Quarter: 2018Q3

REPORT INFORMATION
  Report Type: Spontaneous
  Country: CA (occurrence: CA)
  Receive Date: 20180326
  Receipt Date: 20180911
  Transmission Date: 20181010
  Serious: Yes (Other)
  Sender: FDA-Public Use
  Company Number: CA-CELLTRION INC.-2018CA018760

PATIENT

DRUGS (3)
  1. METHOTREXATE. [Concomitant]
     Active Substance: METHOTREXATE
     Dosage: 20 MG, 1/WEEK
     Dates: start: 201204, end: 201801
  2. INFLECTRA [Suspect]
     Active Substance: INFLIXIMAB-DYYB
     Dosage: 3 MG/KG, UNK
     Route: 042
     Dates: start: 20180314, end: 20180314
  3. INFLECTRA [Suspect]
     Active Substance: INFLIXIMAB-DYYB
     Indication: RHEUMATOID ARTHRITIS
     Dosage: 3 MG/KG, UNK
     Route: 042
     Dates: start: 201710, end: 201803

REACTIONS (10)
  - Hypertension [Unknown]
  - Chest pain [Unknown]
  - Heart rate increased [Unknown]
  - Joint swelling [Unknown]
  - Arthralgia [Unknown]
  - Pain in extremity [Unknown]
  - Palpitations [Unknown]
  - Pain [Unknown]
  - Tachycardia [Unknown]
  - Hypersomnia [Unknown]

NARRATIVE: CASE EVENT DATE: 20180314
